FAERS Safety Report 17438048 (Version 1)
Quarter: 2020Q1

REPORT INFORMATION
  Report Type: Report from Study
  Country: CA (occurrence: CA)
  Receive Date: 20200220
  Receipt Date: 20200220
  Transmission Date: 20200409
  Serious: Yes (Other)
  Sender: FDA-Public Use
  Company Number: PHHY2018CA015411

PATIENT
  Age: 84 Year
  Sex: Male

DRUGS (4)
  1. SANDOSTATIN LAR DEPOT [Suspect]
     Active Substance: OCTREOTIDE ACETATE
     Indication: CARCINOID TUMOUR
     Dosage: 30 MG, QMO
     Route: 030
     Dates: start: 20171228
  2. SANDOSTATIN [Suspect]
     Active Substance: OCTREOTIDE ACETATE
     Indication: CARCINOID TUMOUR
     Dosage: TEST DOSE ONCE/SINGLE
     Route: 058
     Dates: start: 20171204, end: 20171204
  3. CEPHALEXIN. [Concomitant]
     Active Substance: CEPHALEXIN
     Indication: PROPHYLAXIS
     Dosage: UNK
     Route: 065
  4. SANDOSTATIN LAR DEPOT [Suspect]
     Active Substance: OCTREOTIDE ACETATE
     Dosage: 30 MG, QMO
     Route: 030

REACTIONS (21)
  - Malignant neoplasm progression [Unknown]
  - Second primary malignancy [Unknown]
  - Urinary tract infection [Unknown]
  - Dehydration [Unknown]
  - Intestinal metastasis [Unknown]
  - Pyrexia [Unknown]
  - Flatulence [Unknown]
  - Fatigue [Unknown]
  - Injection site discomfort [Unknown]
  - Incorrect dose administered [Unknown]
  - Injection site pain [Unknown]
  - Abnormal faeces [Unknown]
  - Body temperature decreased [Unknown]
  - Needle issue [Unknown]
  - Blood pressure systolic increased [Unknown]
  - Drug intolerance [Unknown]
  - Sinus congestion [Unknown]
  - Weight decreased [Unknown]
  - Rectal cancer [Unknown]
  - Dysuria [Unknown]
  - Decreased appetite [Unknown]

NARRATIVE: CASE EVENT DATE: 2018
